FAERS Safety Report 5863319-3 (Version None)
Quarter: 2008Q3

REPORT INFORMATION
  Report Type: 
  Country: None (occurrence: None)
  Receive Date: 20080828
  Receipt Date: 20080819
  Transmission Date: 20090109
  Serious: Yes (Other)
  Sender: FDA-Public Use
  Company Number: PHHY2008FR18978

PATIENT
  Age: 55 Year
  Sex: Male

DRUGS (5)
  1. TEGRETOL [Suspect]
     Indication: BIPOLAR DISORDER
     Dosage: 400 MG, BID
     Route: 048
     Dates: start: 20050101
  2. SIMVASTATIN [Concomitant]
  3. EFFEXOR [Concomitant]
     Dosage: 50 MG
  4. EFFEXOR [Concomitant]
     Dosage: 37.5 MG
  5. RISPERDAL [Concomitant]

REACTIONS (2)
  - VISION BLURRED [None]
  - VISUAL IMPAIRMENT [None]
